FAERS Safety Report 6900605-X (Version None)
Quarter: 2010Q3

REPORT INFORMATION
  Report Type: 
  Country: None (occurrence: None)
  Receive Date: 20100730
  Receipt Date: 20100715
  Transmission Date: 20110219
  Serious: Yes (Disabling)
  Sender: FDA-Public Use
  Company Number: AUR-APL-2010-01809

PATIENT
  Age: 35 Year
  Sex: Male
  Weight: 80 kg

DRUGS (3)
  1. RISPERIDONE [Suspect]
     Dosage: 1 TABLET - DAILY
     Dates: start: 20100605
  2. PAROXETINE 20MG TABLET (AUROBINDO) [Suspect]
     Indication: DEPRESSION
     Dosage: 40MG - DAILY
     Dates: start: 20100605
  3. DIAZEPAM [Concomitant]

REACTIONS (6)
  - DIZZINESS [None]
  - HYPERHIDROSIS [None]
  - IMPAIRED WORK ABILITY [None]
  - INSOMNIA [None]
  - RESTLESSNESS [None]
  - TREMOR [None]
